FAERS Safety Report 8579816-6 (Version None)
Quarter: 2012Q3

REPORT INFORMATION
  Report Type: 
  Country: None (occurrence: None)
  Receive Date: 20120808
  Receipt Date: 20111024
  Transmission Date: 20120928
  Serious: No
  Sender: FDA-Public Use
  Company Number: US-MUTUAL PHARMACEUTICAL COMPANY, INC.-DXCY20110016

PATIENT
  Sex: Female
  Weight: 79.45 kg

DRUGS (2)
  1. DOXYCYCLINE HYCLATE [Suspect]
     Indication: BLEPHARITIS
     Route: 048
     Dates: start: 20111021, end: 20111024
  2. KELNOR 1/35 [Concomitant]
     Indication: CONTRACEPTION
     Route: 048

REACTIONS (6)
  - HAEMATOCHEZIA [None]
  - PYREXIA [None]
  - ABDOMINAL PAIN [None]
  - DECREASED APPETITE [None]
  - DIZZINESS [None]
  - DIARRHOEA [None]
